FAERS Safety Report 8428235-1 (Version None)
Quarter: 2012Q2

REPORT INFORMATION
  Report Type: 
  Country: None (occurrence: None)
  Receive Date: 20120611
  Receipt Date: 20120611
  Transmission Date: 20120825
  Serious: Yes (Death, Hospitalization)
  Sender: FDA-Public Use
  Company Number: PL-BAXTER-2012BAX007935

PATIENT
  Age: 17 Year
  Sex: Male

DRUGS (4)
  1. DOXORUBICIN HCL [Suspect]
     Indication: EWING'S SARCOMA
  2. ETOPOSIDE [Suspect]
     Indication: EWING'S SARCOMA
  3. IFOSFAMIDE [Suspect]
     Indication: EWING'S SARCOMA
  4. VINCRISTINE [Suspect]
     Indication: EWING'S SARCOMA

REACTIONS (2)
  - RHABDOMYOLYSIS [None]
  - PANCYTOPENIA [None]
